FAERS Safety Report 20379223 (Version 2)
Quarter: 2022Q1

REPORT INFORMATION
  Report Type: Spontaneous
  Country: US (occurrence: None)
  Receive Date: 20220126
  Receipt Date: 20220209
  Transmission Date: 20220424
  Serious: Yes (Other)
  Sender: FDA-Public Use
  Company Number: 2022A031099

PATIENT
  Age: 26780 Day
  Sex: Male
  Weight: 50.6 kg

DRUGS (2)
  1. SYMBICORT [Suspect]
     Active Substance: BUDESONIDE\FORMOTEROL FUMARATE DIHYDRATE
     Indication: Chronic obstructive pulmonary disease
     Dosage: 160/4.5 MCGS, 2 DF, TWO PUFFS TWICE DAILY
     Route: 055
     Dates: start: 2019
  2. SYMBICORT [Suspect]
     Active Substance: BUDESONIDE\FORMOTEROL FUMARATE DIHYDRATE
     Indication: Emphysema
     Dosage: 160/4.5 MCGS, 2 DF, TWO PUFFS TWICE DAILY
     Route: 055
     Dates: start: 2019

REACTIONS (6)
  - Cerebrovascular accident [Unknown]
  - Muscular weakness [Unknown]
  - Weight decreased [Unknown]
  - Device use issue [Unknown]
  - Device defective [Unknown]
  - Wrong technique in product usage process [Unknown]

NARRATIVE: CASE EVENT DATE: 20220107
